FAERS Safety Report 25585919 (Version 1)
Quarter: 2025Q3

REPORT INFORMATION
  Report Type: Spontaneous
  Country: CN (occurrence: CN)
  Receive Date: 20250721
  Receipt Date: 20250721
  Transmission Date: 20251021
  Serious: Yes (Other)
  Sender: ASTELLAS
  Company Number: CN-ASTELLAS-2025-AER-038610

PATIENT
  Age: 47 Year
  Sex: Male
  Weight: 59 kg

DRUGS (7)
  1. TACROLIMUS [Suspect]
     Active Substance: TACROLIMUS
     Indication: Glomerulonephritis membranous
     Dosage: FK506, 3 MG (IN THE MORNING) AND 2 MG (IN THE EVENING)
     Route: 048
     Dates: start: 20220729, end: 20220802
  2. TACROLIMUS [Suspect]
     Active Substance: TACROLIMUS
     Dosage: 2 MG (IN THE MORNING) AND 1 MG (IN THE EVENING) DISCONTINUED ON 04-AUG
     Route: 048
     Dates: start: 20220802, end: 20220804
  3. METHYLPREDNISOLONE [Suspect]
     Active Substance: METHYLPREDNISOLONE
     Indication: Glomerulonephritis membranous
     Route: 048
     Dates: start: 20220804, end: 20221101
  4. METHYLPREDNISOLONE [Suspect]
     Active Substance: METHYLPREDNISOLONE
     Route: 048
     Dates: start: 202207, end: 20220804
  5. METHYLPREDNISOLONE [Suspect]
     Active Substance: METHYLPREDNISOLONE
     Route: 048
     Dates: start: 20221101, end: 2023
  6. METHYLPREDNISOLONE [Suspect]
     Active Substance: METHYLPREDNISOLONE
     Route: 048
     Dates: start: 2023
  7. LOSARTAN POTASSIUM [Concomitant]
     Active Substance: LOSARTAN POTASSIUM
     Indication: Hypertension
     Route: 065
     Dates: start: 202208

REACTIONS (6)
  - Pulmonary nocardiosis [Recovered/Resolved]
  - Peripheral nerve injury [Unknown]
  - Off label use [Unknown]
  - Cardiac disorder [Unknown]
  - Herpes zoster [Unknown]
  - Keratitis [Recovered/Resolved]

NARRATIVE: CASE EVENT DATE: 20220101
